FAERS Safety Report 23334878 (Version 4)
Quarter: 2024Q4

REPORT INFORMATION
  Report Type: Other
  Country: US (occurrence: US)
  Receive Date: 20231224
  Receipt Date: 20241114
  Transmission Date: 20250114
  Serious: No
  Sender: TRAVERE THERAPEUTICS
  Company Number: US-TRAVERE-2023TVT00854

PATIENT
  Sex: Female
  Weight: 72.57 kg

DRUGS (13)
  1. FILSPARI [Suspect]
     Active Substance: SPARSENTAN
     Indication: IgA nephropathy
     Route: 048
  2. FILSPARI [Suspect]
     Active Substance: SPARSENTAN
     Indication: Haematuria
     Route: 048
     Dates: start: 20231128
  3. FILSPARI [Suspect]
     Active Substance: SPARSENTAN
     Route: 048
     Dates: start: 202408
  4. HYDROCORTISONE-ALOE [Concomitant]
  5. AMBIEN CR [Concomitant]
     Active Substance: ZOLPIDEM TARTRATE
  6. ZADITOR [Concomitant]
     Active Substance: KETOTIFEN FUMARATE
  7. FLONASE ALLERGY RELIE [Concomitant]
  8. EMERGEN-C [Concomitant]
     Active Substance: VITAMINS
  9. MAGNESIUM OXIDE [Concomitant]
     Active Substance: MAGNESIUM OXIDE
  10. ALLEGRA ALLERGY [Concomitant]
     Active Substance: FEXOFENADINE HYDROCHLORIDE
  11. TYLENOL ARTHRITIS PAIN [Concomitant]
     Active Substance: ACETAMINOPHEN
  12. FARXIGA [Concomitant]
     Active Substance: DAPAGLIFLOZIN PROPANEDIOL
  13. ZEPBOUND [Concomitant]
     Active Substance: TIRZEPATIDE

REACTIONS (8)
  - Dizziness [Recovered/Resolved]
  - Blood creatinine decreased [Recovered/Resolved]
  - Hypotension [None]
  - Muscle spasms [Unknown]
  - Dizziness [Unknown]
  - Weight decreased [Unknown]
  - Wrong technique in product usage process [Unknown]
  - Swelling [Unknown]
